FAERS Safety Report 8505148 (Version 2)
Quarter: 2012Q4

REPORT INFORMATION
  Report Type: 
  Country: US (occurrence: US)
  Receive Date: 20120412
  Receipt Date: 20120830
  Transmission Date: 20130627
  Serious: Yes (Other)
  Sender: FDA-Public Use
  Company Number: US-BAYER-2012-033300

PATIENT
  Age: 27 Year
  Sex: Female
  Weight: 79.82 kg

DRUGS (16)
  1. YAZ [Suspect]
     Indication: CONTRACEPTION
     Dosage: UNK
     Dates: start: 20070803, end: 20100215
  2. YAZ [Suspect]
     Indication: PREMENSTRUAL SYNDROME
  3. YASMIN [Suspect]
     Indication: CONTRACEPTION
     Dosage: UNK
     Dates: start: 20050909, end: 200708
  4. YASMIN [Suspect]
     Indication: PREMENSTRUAL SYNDROME
  5. EFFEXOR [Concomitant]
     Indication: DEPRESSION
     Dosage: 175 one per day
     Dates: start: 200308
  6. AZITHROMYCIN [Concomitant]
     Dosage: 250 mg, UNK
     Dates: start: 20080206
  7. TUSSIONEX [Concomitant]
     Dosage: 1 tea bid
     Dates: start: 20080208
  8. TAMIFLU [Concomitant]
     Dosage: 75 mg, UNK
     Dates: start: 20080222
  9. H-C TUSSIVE [Concomitant]
     Dosage: One or two tes (Interpreted as teaspoon) qid prn
     Route: 048
     Dates: start: 20080227
  10. PRENAVITE [Concomitant]
     Indication: PRENATAL CARE
     Dosage: UNK UNK, QD
     Dates: start: 200803
  11. CHANTIX [Concomitant]
     Dosage: 1 mg, One tablet, BID
     Route: 048
     Dates: start: 20080312
  12. DICYCLOMINE [Concomitant]
     Dosage: 20 mg, QID, 1 T
     Route: 048
     Dates: start: 20080512
  13. CIPROFLOXACIN [Concomitant]
     Dosage: 500 mg, 1 T, BID
     Route: 048
     Dates: start: 20080515
  14. SULFAMETHOXAZOLE/TRIMETHOPRIM [Concomitant]
     Dosage: 800/160 1 T bid
     Route: 048
     Dates: start: 20080519
  15. FLUCONAZOLE [Concomitant]
     Dosage: 150 mg, 1 T qod(one tablet every other day)
     Route: 048
     Dates: start: 20080524
  16. ACIPHEX [Concomitant]

REACTIONS (11)
  - Gallbladder injury [None]
  - Cholecystitis chronic [None]
  - Abdominal pain [None]
  - Impaired work ability [None]
  - Depression [None]
  - Injury [None]
  - General physical health deterioration [None]
  - Pain [None]
  - Anxiety [None]
  - Emotional distress [None]
  - Anhedonia [None]
